FAERS Safety Report 6175484-1 (Version None)
Quarter: 2009Q2

REPORT INFORMATION
  Report Type: 
  Country: None (occurrence: None)
  Receive Date: 20090430
  Receipt Date: 20090420
  Transmission Date: 20091009
  Serious: Yes (Death)
  Sender: FDA-Public Use
  Company Number: GXKR2009GB04858

PATIENT
  Age: 19 Month

DRUGS (9)
  1. CYCLOSPORINE [Suspect]
     Indication: BONE MARROW TRANSPLANT
  2. CYCLOSPORINE [Suspect]
     Indication: PROPHYLAXIS AGAINST GRAFT VERSUS HOST DISEASE
  3. ETOPOSIDE [Suspect]
     Indication: BONE MARROW CONDITIONING REGIMEN
  4. ETOPOSIDE [Suspect]
     Indication: BONE MARROW TRANSPLANT
  5. BUSULPHAN (BUSULFAN) [Suspect]
     Indication: BONE MARROW CONDITIONING REGIMEN
  6. BUSULPHAN (BUSULFAN) [Suspect]
     Indication: BONE MARROW TRANSPLANT
  7. CYCLOPHOSPHAMIDE [Suspect]
     Indication: BONE MARROW CONDITIONING REGIMEN
  8. CYCLOPHOSPHAMIDE [Suspect]
     Indication: BONE MARROW TRANSPLANT
  9. ANTITHYMOCYTE IMMUNOGLOBULIN(ANTITHYMOCYTE IMMUNOGLOBULIN) [Suspect]
     Indication: BONE MARROW TRANSPLANT

REACTIONS (3)
  - GRAFT VERSUS HOST DISEASE [None]
  - INFECTION [None]
  - NEOPLASM MALIGNANT [None]
